FAERS Safety Report 18497175 (Version 1)
Quarter: 2020Q4

REPORT INFORMATION
  Report Type: Report from Study
  Country: US (occurrence: US)
  Receive Date: 20201112
  Receipt Date: 20201112
  Transmission Date: 20210114
  Serious: Yes (Other)
  Sender: FDA-Public Use
  Company Number: US-JNJFOC-20201109603

PATIENT

DRUGS (1)
  1. ULTRAM [Suspect]
     Active Substance: TRAMADOL HYDROCHLORIDE
     Indication: PAIN
     Route: 065

REACTIONS (20)
  - Hypoglycaemia [Unknown]
  - Hypoglycaemic coma [Unknown]
  - Hypoxia [Unknown]
  - Road traffic accident [Unknown]
  - Toxicity to various agents [Unknown]
  - Overdose [Unknown]
  - Suicidal ideation [Unknown]
  - Drug withdrawal syndrome neonatal [Unknown]
  - Hypotension [Unknown]
  - Vomiting [Unknown]
  - Hyperhidrosis [Unknown]
  - Altered state of consciousness [Unknown]
  - Intentional overdose [Unknown]
  - Seizure [Unknown]
  - Suicide attempt [Unknown]
  - Malaise [Unknown]
  - Dizziness [Unknown]
  - Depressed level of consciousness [Unknown]
  - Accidental overdose [Unknown]
  - Loss of consciousness [Unknown]
